FAERS Safety Report 26185807 (Version 1)
Quarter: 2025Q4

REPORT INFORMATION
  Report Type: Spontaneous
  Country: CA (occurrence: CA)
  Receive Date: 20251222
  Receipt Date: 20251222
  Transmission Date: 20260117
  Serious: Yes (Hospitalization)
  Sender: TEVA
  Company Number: CA-TEVA-VS-3405828

PATIENT
  Age: 59 Year
  Sex: Female

DRUGS (3)
  1. ROSUVASTATIN [Suspect]
     Active Substance: ROSUVASTATIN
     Indication: Cerebrovascular accident
     Route: 048
  2. METFORMIN [Concomitant]
     Active Substance: METFORMIN HYDROCHLORIDE
     Indication: Product used for unknown indication
     Route: 065
  3. TELMISARTAN [Concomitant]
     Active Substance: TELMISARTAN
     Indication: Product used for unknown indication
     Route: 065

REACTIONS (6)
  - Acute kidney injury [Recovering/Resolving]
  - Dizziness [Recovering/Resolving]
  - Flank pain [Recovering/Resolving]
  - Myalgia [Recovering/Resolving]
  - Hypotension [Recovering/Resolving]
  - Rhabdomyolysis [Recovering/Resolving]
